FAERS Safety Report 4618883-9 (Version None)
Quarter: 2005Q1

REPORT INFORMATION
  Report Type: 
  Country: None (occurrence: None)
  Receive Date: 20050323
  Receipt Date: 20050315
  Transmission Date: 20050727
  Serious: Yes (Hospitalization, Other)
  Sender: FDA-Public Use
  Company Number: 2005034175

PATIENT
  Age: 80 Year
  Sex: Male
  Weight: 82.1011 kg

DRUGS (9)
  1. TIKOSYN [Suspect]
     Indication: CARDIAC FIBRILLATION
     Dosage: 500 MCG (250 MCG, BID, EVERY DAY), ORAL
     Route: 048
     Dates: start: 20040715
  2. ATORVASTATIN (ATORVASTATIN) [Concomitant]
  3. SINEMET [Concomitant]
  4. FUROSEMIDE [Concomitant]
  5. POTASSIUM CHLORIDE [Concomitant]
  6. RAMIPRIL [Concomitant]
  7. PAROXETINE HCL [Concomitant]
  8. FINASTERIDE [Concomitant]
  9. LEVOTHYROXINE SODIUM [Concomitant]

REACTIONS (10)
  - AORTIC VALVE DISEASE [None]
  - CARDIOMEGALY [None]
  - CORONARY ARTERY OCCLUSION [None]
  - DRUG INEFFECTIVE [None]
  - HYPERTENSION [None]
  - PARKINSON'S DISEASE [None]
  - PHARMACEUTICAL PRODUCT COMPLAINT [None]
  - SYNCOPE [None]
  - TRICUSPID VALVE DISEASE [None]
  - UPPER RESPIRATORY TRACT INFECTION [None]
